FAERS Safety Report 4732631-3 (Version None)
Quarter: 2005Q3

REPORT INFORMATION
  Report Type: 
  Country: None (occurrence: None)
  Receive Date: 20050802
  Receipt Date: 20050802
  Transmission Date: 20060218
  Serious: Yes (Disabling)
  Sender: FDA-Public Use
  Company Number: None

PATIENT
  Age: 74 Year
  Sex: Female

DRUGS (8)
  1. FOSAMAX [Suspect]
     Indication: BONE DENSITY DECREASED
     Dosage: SEE IMAGE
     Dates: start: 20001101
  2. FOSAMAX [Suspect]
     Indication: BONE DENSITY DECREASED
     Dosage: SEE IMAGE
     Dates: start: 20050501
  3. TEGRETOL [Concomitant]
  4. PENTOXIFYLLINE [Concomitant]
  5. ZOCOR [Concomitant]
  6. PAXIL [Concomitant]
  7. METFORMIN [Concomitant]
  8. . [Concomitant]

REACTIONS (1)
  - OSTEONECROSIS [None]
